FAERS Safety Report 10349990 (Version 1)
Quarter: 2014Q3

REPORT INFORMATION
  Report Type: Spontaneous
  Country: US (occurrence: US)
  Receive Date: 20140730
  Receipt Date: 20140730
  Transmission Date: 20150326
  Serious: No
  Sender: FDA-Public Use
  Company Number: US-GLAXOSMITHKLINE-A1048860A

PATIENT
  Age: 51 Year
  Sex: Male

DRUGS (2)
  1. DIVALPROEX [Concomitant]
     Active Substance: DIVALPROEX SODIUM
  2. IMITREX [Suspect]
     Active Substance: SUMATRIPTAN\SUMATRIPTAN SUCCINATE
     Indication: MIGRAINE
     Route: 048
     Dates: start: 201211, end: 201212

REACTIONS (4)
  - Heart rate increased [Unknown]
  - Swollen tongue [Recovered/Resolved]
  - Discomfort [Unknown]
  - Dyspnoea [Unknown]

NARRATIVE: CASE EVENT DATE: 201211
